FAERS Safety Report 5160078-7 (Version None)
Quarter: 2006Q4

REPORT INFORMATION
  Report Type: 
  Country: None (occurrence: None)
  Receive Date: 20061129
  Receipt Date: 20060915
  Transmission Date: 20070319
  Serious: No
  Sender: FDA-Public Use
  Company Number: US-GLAXOSMITHKLINE-A0620349A

PATIENT
  Age: 45 Year
  Sex: Male

DRUGS (9)
  1. WELLBUTRIN SR [Suspect]
     Indication: DRUG USE FOR UNKNOWN INDICATION
     Dosage: 200MG TWICE PER DAY
     Route: 048
  2. VYTORIN [Concomitant]
  3. RESTASIS [Concomitant]
  4. LORAZEPAM [Concomitant]
  5. SEROQUEL [Concomitant]
  6. ZYRTEC [Concomitant]
  7. LEXAPRO [Concomitant]
  8. SINGULAIR [Concomitant]
  9. LEVOTHYROXINE SODIUM [Concomitant]

REACTIONS (2)
  - MALAISE [None]
  - PHARMACEUTICAL PRODUCT COMPLAINT [None]
